FAERS Safety Report 8646802 (Version 2)
Quarter: 2013Q1

REPORT INFORMATION
  Report Type: Spontaneous
  Country: US (occurrence: US)
  Receive Date: 20120703
  Receipt Date: 20130305
  Transmission Date: 20140127
  Serious: No
  Sender: FDA-Public Use
  Company Number: US-PFIZER INC-2012155008

PATIENT
  Age: 56 Year
  Sex: Female
  Weight: 83.08 kg

DRUGS (5)
  1. LYRICA [Suspect]
     Indication: HYPOAESTHESIA
     Dosage: 200 MG, 2X/DAY (1 PO BID)
     Route: 048
  2. LYRICA [Suspect]
     Indication: PARAESTHESIA
  3. ESTRACE [Concomitant]
     Dosage: UNK
  4. XALATAN [Concomitant]
     Dosage: UNK
  5. ATIVAN [Concomitant]
     Dosage: UNK

REACTIONS (6)
  - Drug ineffective [Unknown]
  - Vision blurred [Unknown]
  - Corrective lens user [Unknown]
  - Discomfort [Unknown]
  - Eye irritation [Unknown]
  - Feeling hot [Unknown]
